FAERS Safety Report 19552601 (Version 1)
Quarter: 2021Q3

REPORT INFORMATION
  Report Type: Spontaneous
  Country: CA (occurrence: CA)
  Receive Date: 20210715
  Receipt Date: 20210715
  Transmission Date: 20211014
  Serious: Yes (Hospitalization, Other)
  Sender: FDA-Public Use
  Company Number: CA-GILEAD-2021-0540282

PATIENT
  Age: 48 Year
  Sex: Female
  Weight: 105 kg

DRUGS (7)
  1. RIBAVIRIN. [Suspect]
     Active Substance: RIBAVIRIN
     Indication: HEPATITIS C
     Route: 048
  2. PEGASYS [Suspect]
     Active Substance: PEGINTERFERON ALFA-2A
     Indication: HEPATITIS C
     Route: 058
  3. QUETIAPINE. [Concomitant]
     Active Substance: QUETIAPINE
  4. DOCUSATE CALCIUM. [Concomitant]
     Active Substance: DOCUSATE CALCIUM
  5. SOVALDI [Suspect]
     Active Substance: SOFOSBUVIR
     Indication: HEPATITIS C
     Route: 048
  6. CLOZAPINE. [Concomitant]
     Active Substance: CLOZAPINE
  7. ATROVENT [Concomitant]
     Active Substance: IPRATROPIUM BROMIDE

REACTIONS (6)
  - Cognitive disorder [Recovered/Resolved]
  - Mental impairment [Recovered/Resolved]
  - Neutropenia [Recovered/Resolved]
  - White blood cell count decreased [Recovered/Resolved]
  - Confusional state [Recovered/Resolved]
  - Psychotic disorder [Recovered/Resolved]
